FAERS Safety Report 6046817-1 (Version None)
Quarter: 2009Q1

REPORT INFORMATION
  Report Type: 
  Country: None (occurrence: None)
  Receive Date: 20090122
  Receipt Date: 20090116
  Transmission Date: 20090719
  Serious: Yes (Hospitalization)
  Sender: FDA-Public Use
  Company Number: A0764148A

PATIENT
  Age: 68 Year
  Sex: Female
  Weight: 126.8 kg

DRUGS (4)
  1. AVANDIA [Suspect]
     Dosage: 4MG PER DAY
     Route: 048
  2. LISINOPRIL [Concomitant]
     Indication: BLOOD PRESSURE
  3. GLUCOPHAGE [Concomitant]
  4. METFORMIN [Concomitant]

REACTIONS (1)
  - MYOCARDIAL INFARCTION [None]
